FAERS Safety Report 14834635 (Version 1)
Quarter: 2018Q2

REPORT INFORMATION
  Report Type: Spontaneous
  Country: US (occurrence: US)
  Receive Date: 20180501
  Receipt Date: 20180501
  Transmission Date: 20180711
  Serious: Yes (Hospitalization)
  Sender: FDA-Public Use
  Company Number: PHHY2018US069078

PATIENT
  Age: 35 Year
  Sex: Female

DRUGS (1)
  1. SEVELAMER [Suspect]
     Active Substance: SEVELAMER
     Dosage: 1600 MG, TID
     Route: 065

REACTIONS (3)
  - Haematochezia [Unknown]
  - Colitis ischaemic [Unknown]
  - Abdominal pain lower [Unknown]
